FAERS Safety Report 6196590-1 (Version None)
Quarter: 2009Q2

REPORT INFORMATION
  Report Type: 
  Country: None (occurrence: None)
  Receive Date: 20090518
  Receipt Date: 20090518
  Transmission Date: 20091009
  Serious: Yes (Other)
  Sender: FDA-Public Use
  Company Number: None

PATIENT
  Sex: Female
  Weight: 113.3993 kg

DRUGS (1)
  1. PYRIDOSTIGMINE BROMIDE [Suspect]
     Indication: MYASTHENIA GRAVIS
     Dosage: 120MG 3 PER/DAY PO
     Route: 048
     Dates: start: 19850301, end: 20090517

REACTIONS (2)
  - PRODUCT FRIABLE [None]
  - PRODUCT SUBSTITUTION ISSUE [None]
